FAERS Safety Report 15905498 (Version 1)
Quarter: 2019Q1

REPORT INFORMATION
  Report Type: Spontaneous
  Country: CH (occurrence: CH)
  Receive Date: 20190204
  Receipt Date: 20190204
  Transmission Date: 20190417
  Serious: Yes (Other)
  Sender: FDA-Public Use
  Company Number: CH-TEVA-2019-CH-1008646

PATIENT
  Sex: Male

DRUGS (5)
  1. RIBOMUSTIN [Suspect]
     Active Substance: BENDAMUSTINE HYDROCHLORIDE
     Dosage: UNK UNK, CYCLIC
     Route: 042
  2. MABTHERA [Concomitant]
     Active Substance: RITUXIMAB
     Indication: CHEMOTHERAPY
     Dosage: UNK UNK, (6 CYCLES)
     Route: 065
     Dates: start: 201007, end: 201012
  3. RIBOMUSTIN [Suspect]
     Active Substance: BENDAMUSTINE HYDROCHLORIDE
     Indication: CHEMOTHERAPY
     Dosage: UNK UNK, CYCLIC (6 CYCLES)
     Route: 042
     Dates: start: 201007, end: 201012
  4. MABTHERA [Concomitant]
     Active Substance: RITUXIMAB
     Dosage: UNK UNK, CYCLIC (5 CYCLES)
     Route: 065
     Dates: start: 20161017, end: 20170213
  5. RIBOMUSTIN [Suspect]
     Active Substance: BENDAMUSTINE HYDROCHLORIDE
     Dosage: UNK UNK, CYCLIC (SECOND-LINE TREATMENT) 5 CYCLES
     Route: 042
     Dates: start: 20161017, end: 20170213

REACTIONS (1)
  - Disease progression [Unknown]
